FAERS Safety Report 4302102-7 (Version None)
Quarter: 2004Q1

REPORT INFORMATION
  Report Type: 
  Country: None (occurrence: None)
  Receive Date: 20040220
  Receipt Date: 20040211
  Transmission Date: 20041129
  Serious: Yes (Hospitalization)
  Sender: FDA-Public Use
  Company Number: K200400184

PATIENT
  Age: 19 Year
  Sex: Female

DRUGS (2)
  1. SONATA [Suspect]
     Dosage: ORAL
     Route: 048
     Dates: start: 20040205, end: 20040205
  2. AMITRIPTYLINE HCL [Suspect]
     Dosage: ORAL
     Route: 048
     Dates: start: 20040205, end: 20040205

REACTIONS (2)
  - COMA [None]
  - INTENTIONAL OVERDOSE [None]
